FAERS Safety Report 15099084 (Version 2)
Quarter: 2018Q3

REPORT INFORMATION
  Report Type: Spontaneous
  Country: JP (occurrence: JP)
  Receive Date: 20180702
  Receipt Date: 20180709
  Transmission Date: 20181010
  Serious: Yes (Other)
  Sender: FDA-Public Use
  Company Number: JP-GILEAD-2018-0347089

PATIENT
  Age: 50 Year
  Sex: Male

DRUGS (3)
  1. VALIXA [Concomitant]
     Active Substance: VALGANCICLOVIR
     Indication: ACQUIRED IMMUNODEFICIENCY SYNDROME
     Route: 048
     Dates: start: 20180520, end: 20180620
  2. GENVOYA [Suspect]
     Active Substance: COBICISTAT\ELVITEGRAVIR\EMTRICITABINE\TENOFOVIR ALAFENAMIDE FUMARATE
     Indication: HIV INFECTION
     Dosage: 1 DF, QD
     Route: 048
     Dates: start: 20180522
  3. DENOSINE [Concomitant]
     Active Substance: GANCICLOVIR
     Indication: ACQUIRED IMMUNODEFICIENCY SYNDROME
     Route: 041
     Dates: start: 20180503, end: 20180519

REACTIONS (1)
  - Bone marrow failure [Not Recovered/Not Resolved]

NARRATIVE: CASE EVENT DATE: 201805
